FAERS Safety Report 7791519-4 (Version None)
Quarter: 2011Q4

REPORT INFORMATION
  Report Type: 
  Country: None (occurrence: None)
  Receive Date: 20111003
  Receipt Date: 20110928
  Transmission Date: 20120403
  Serious: Yes (Hospitalization)
  Sender: FDA-Public Use
  Company Number: US-GENZYME-POMP-1001812

PATIENT
  Sex: Male
  Weight: 110 kg

DRUGS (1)
  1. LUMIZYME [Suspect]
     Indication: GLYCOGEN STORAGE DISEASE TYPE II
     Dosage: 2200 MG, Q2W
     Route: 042
     Dates: start: 20100101

REACTIONS (2)
  - NEPHROLITHIASIS [None]
  - INFECTION [None]
